FAERS Safety Report 17026635 (Version 1)
Quarter: 2019Q4

REPORT INFORMATION
  Report Type: Spontaneous
  Country: US (occurrence: US)
  Receive Date: 20191009
  Receipt Date: 20191009
  Transmission Date: 20200122
  Serious: Yes (Hospitalization)
  Sender: FDA-Public Use
  Company Number: None

PATIENT
  Age: 67 Year
  Sex: Male
  Weight: 80 kg

DRUGS (1)
  1. ERBITUX [Suspect]
     Active Substance: CETUXIMAB
     Dates: end: 20190829

REACTIONS (8)
  - Vascular device infection [None]
  - Haematoma [None]
  - Skin laceration [None]
  - Fall [None]
  - Face injury [None]
  - Refusal of treatment by patient [None]
  - Haemorrhage [None]
  - Swelling [None]

NARRATIVE: CASE EVENT DATE: 20190925
